FAERS Safety Report 25946426 (Version 1)
Quarter: 2025Q4

REPORT INFORMATION
  Report Type: Spontaneous
  Country: EU (occurrence: EU)
  Receive Date: 20251022
  Receipt Date: 20251022
  Transmission Date: 20260118
  Serious: Yes (Life-Threatening, Hospitalization, Other)
  Sender: Haleon PLC
  Company Number: EU-MYLANLABS-2009S1019411

PATIENT
  Age: 48 Year
  Sex: Male

DRUGS (1)
  1. DICLOFENAC [Suspect]
     Active Substance: DICLOFENAC
     Indication: Back pain

REACTIONS (3)
  - Acute myocardial infarction [Unknown]
  - Anaphylactic reaction [Unknown]
  - Kounis syndrome [Recovered/Resolved]
